APPROVED DRUG PRODUCT: PROAIR DIGIHALER
Active Ingredient: ALBUTEROL SULFATE
Strength: EQ 0.09MG BASE/INH
Dosage Form/Route: POWDER, METERED;INHALATION
Application: N205636 | Product #002
Applicant: TEVA BRANDED PHARMACEUTICAL PRODUCTS R AND D LLC
Approved: Dec 21, 2018 | RLD: Yes | RS: No | Type: DISCN